FAERS Safety Report 8017059-5 (Version None)
Quarter: 2012Q1

REPORT INFORMATION
  Report Type: 
  Country: None (occurrence: None)
  Receive Date: 20120102
  Receipt Date: 20111229
  Transmission Date: 20120608
  Serious: Yes (Death, Hospitalization)
  Sender: FDA-Public Use
  Company Number: PHHY2011NI113529

PATIENT
  Age: 82 Year
  Sex: Female

DRUGS (4)
  1. FORADIL [Suspect]
     Dosage: 12 UG, BID
  2. ALDACTONE [Concomitant]
  3. OXYGEN [Concomitant]
  4. LOSARTAN POTASSIUM [Concomitant]

REACTIONS (5)
  - DYSPNOEA [None]
  - HYPERTENSIVE CARDIOMYOPATHY [None]
  - BLOOD GLUCOSE INCREASED [None]
  - HYPOTENSION [None]
  - BRADYCARDIA [None]
